FAERS Safety Report 16775401 (Version 1)
Quarter: 2019Q3

REPORT INFORMATION
  Report Type: Spontaneous
  Country: US (occurrence: US)
  Receive Date: 20190905
  Receipt Date: 20190905
  Transmission Date: 20191005
  Serious: No
  Sender: FDA-Public Use
  Company Number: US-SHIRE-US201928969

PATIENT
  Sex: Male

DRUGS (5)
  1. GAMMAGARD LIQUID [Suspect]
     Active Substance: HUMAN IMMUNOGLOBULIN G
     Dosage: 135 GRAM, EVERY 4 WK
     Route: 042
     Dates: start: 20190718
  2. GAMMAGARD LIQUID [Suspect]
     Active Substance: HUMAN IMMUNOGLOBULIN G
     Dosage: 135 GRAM, EVERY 4 WK
     Route: 042
     Dates: start: 20190718
  3. GAMMAGARD LIQUID [Suspect]
     Active Substance: HUMAN IMMUNOGLOBULIN G
     Dosage: 135 GRAM, EVERY 4 WK
     Route: 042
     Dates: start: 20190717
  4. GAMMAGARD LIQUID [Suspect]
     Active Substance: HUMAN IMMUNOGLOBULIN G
     Indication: MULTIFOCAL MOTOR NEUROPATHY
     Dosage: 135 GRAM, EVERY 4 WK
     Route: 042
     Dates: start: 20190717
  5. GAMMAGARD LIQUID [Suspect]
     Active Substance: HUMAN IMMUNOGLOBULIN G
     Dosage: 135 GRAM, EVERY 4 WK
     Route: 042
     Dates: start: 20190718

REACTIONS (1)
  - Malaise [Unknown]
